FAERS Safety Report 7128059-1 (Version None)
Quarter: 2010Q4

REPORT INFORMATION
  Report Type: 
  Country: None (occurrence: None)
  Receive Date: 20101130
  Receipt Date: 20101117
  Transmission Date: 20110411
  Serious: No
  Sender: FDA-Public Use
  Company Number: US-JNJFOC-20101105443

PATIENT
  Sex: Female
  Weight: 72.58 kg

DRUGS (40)
  1. FENTANYL-100 [Suspect]
     Indication: PAIN IN EXTREMITY
     Route: 062
  2. FENTANYL-100 [Suspect]
     Route: 062
  3. FENTANYL-100 [Suspect]
     Route: 062
  4. FENTANYL-100 [Suspect]
     Route: 062
  5. FENTANYL-100 [Suspect]
     Indication: ARTHRALGIA
     Route: 062
  6. FENTANYL-100 [Suspect]
     Route: 062
  7. FENTANYL-100 [Suspect]
     Route: 062
  8. FENTANYL-100 [Suspect]
     Route: 062
  9. FENTANYL-100 [Suspect]
     Route: 062
  10. FENTANYL-100 [Suspect]
     Route: 062
  11. FENTANYL-100 [Suspect]
     Route: 062
  12. FENTANYL-100 [Suspect]
     Route: 062
  13. FENTANYL-100 [Suspect]
     Indication: ARTHRITIS
     Route: 062
  14. FENTANYL-100 [Suspect]
     Route: 062
  15. FENTANYL-100 [Suspect]
     Route: 062
  16. FENTANYL-100 [Suspect]
     Route: 062
  17. KLONOPIN [Concomitant]
     Dosage: 1 AT NIGHT OR AS NEEDED
     Route: 048
  18. LORTAB [Concomitant]
     Indication: PAIN
     Route: 048
  19. SINGULAIR [Concomitant]
     Indication: ASTHMA
     Route: 048
  20. ASPIRIN [Concomitant]
     Indication: BLOOD PRESSURE
     Route: 048
  21. ASTELIN [Concomitant]
     Indication: MULTIPLE ALLERGIES
     Route: 045
  22. NORVASC [Concomitant]
     Indication: MUSCLE SPASTICITY
     Route: 048
  23. CARISOPRODOL [Concomitant]
     Indication: MUSCLE SPASMS
     Route: 048
  24. LANSOPRAZOLE [Concomitant]
     Indication: GASTROOESOPHAGEAL REFLUX DISEASE
     Route: 048
  25. FLUTICASONE PROPIONATE [Concomitant]
     Indication: MULTIPLE ALLERGIES
     Route: 045
  26. ALLEGRA D 24 HOUR [Concomitant]
     Indication: MULTIPLE ALLERGIES
     Route: 048
  27. BYSTOLIC [Concomitant]
     Indication: BLOOD PRESSURE
     Route: 048
  28. LIPITOR [Concomitant]
     Indication: BLOOD CHOLESTEROL
     Route: 048
  29. CELEBREX [Concomitant]
     Indication: ARTHRITIS
     Route: 048
  30. CARBIDOPA AND LEVODOPA [Concomitant]
     Indication: MUSCLE SPASMS
     Dosage: TWICE AT NIGHT OR AS NEEDED
     Route: 048
  31. RANITIDINE [Concomitant]
     Indication: MUSCLE SPASMS
     Route: 048
  32. BUPROPION [Concomitant]
     Indication: DEPRESSION
     Route: 048
  33. GABAPENTIN [Concomitant]
     Indication: MUSCLE SPASMS
     Route: 048
  34. AMLODIPINE BESYLATE [Concomitant]
     Indication: BLOOD PRESSURE
     Route: 048
  35. LORAZEPAM [Concomitant]
     Indication: MUSCLE SPASMS
     Route: 048
  36. ADVAIR DISKUS 100/50 [Concomitant]
     Indication: ASTHMA
     Dosage: 1 PUFF TWICE A DAY
     Route: 055
  37. PROAIR HFA [Concomitant]
     Indication: ASTHMA
     Dosage: 1 TO 2 PUFFS
     Route: 055
  38. CLONAZEPAM [Concomitant]
     Indication: MUSCLE SPASMS
     Route: 048
  39. SINEMET [Concomitant]
     Indication: MUSCLE SPASMS
     Dosage: 25-100MG
     Route: 048
  40. AMLODIPINE [Concomitant]
     Indication: BLOOD PRESSURE
     Route: 048

REACTIONS (6)
  - INADEQUATE ANALGESIA [None]
  - INAPPROPRIATE SCHEDULE OF DRUG ADMINISTRATION [None]
  - INSOMNIA [None]
  - PAIN [None]
  - PRODUCT ADHESION ISSUE [None]
  - WRONG TECHNIQUE IN DRUG USAGE PROCESS [None]
